FAERS Safety Report 5571367-6 (Version None)
Quarter: 2007Q4

REPORT INFORMATION
  Report Type: 
  Country: None (occurrence: None)
  Receive Date: 20071221
  Receipt Date: 20070824
  Transmission Date: 20080405
  Serious: No
  Sender: FDA-Public Use
  Company Number: A0676161A

PATIENT
  Age: 53 Year
  Sex: Female

DRUGS (4)
  1. FLUTICASONE PROPIONATE [Suspect]
     Dosage: 50MCG PER DAY
     Route: 045
     Dates: start: 20070601
  2. CHOLESTYRAMINE [Concomitant]
  3. CATAPRES-TTS-1 [Concomitant]
  4. PRO-AIR [Concomitant]

REACTIONS (2)
  - HEADACHE [None]
  - SCAB [None]
